FAERS Safety Report 16763202 (Version 2)
Quarter: 2019Q3

REPORT INFORMATION
  Report Type: Report from Study
  Country: JP (occurrence: JP)
  Receive Date: 20190902
  Receipt Date: 20190909
  Transmission Date: 20191005
  Serious: Yes (Hospitalization, Other)
  Sender: FDA-Public Use
  Company Number: JP-AMGEN-JPNCT2019138882

PATIENT
  Age: 30 Year
  Sex: Male

DRUGS (22)
  1. ANTITHYMOCYTE IMMUNOGLOBULIN (RABBIT) [Suspect]
     Active Substance: LAPINE T-LYMPHOCYTE IMMUNE GLOBULIN
     Dosage: 120 MG
     Route: 065
     Dates: start: 20190821, end: 20190821
  2. METHYLPREDNISOLONE NA SUCCINATE [Concomitant]
     Active Substance: METHYLPREDNISOLONE SODIUM SUCCINATE
     Indication: PRODUCT USED FOR UNKNOWN INDICATION
     Dosage: UNK
     Route: 042
     Dates: start: 20190819, end: 20190823
  3. ACICLOVIR [Concomitant]
     Active Substance: ACYCLOVIR
     Indication: PRODUCT USED FOR UNKNOWN INDICATION
     Dosage: UNK
     Route: 048
     Dates: start: 20190819
  4. CICLOSPORIN [Suspect]
     Active Substance: CYCLOSPORINE
     Dosage: 220 MG
     Route: 065
     Dates: start: 20190822, end: 201908
  5. LENOGRASTIM [Concomitant]
     Active Substance: LENOGRASTIM
     Indication: PRODUCT USED FOR UNKNOWN INDICATION
     Dosage: 100 MICROGRAM
     Route: 065
     Dates: start: 20190822, end: 20190826
  6. ZOLPIDEM TARTRATE. [Concomitant]
     Active Substance: ZOLPIDEM TARTRATE
     Indication: INSOMNIA
     Dosage: UNK
     Route: 048
     Dates: start: 201902
  7. CICLOSPORIN [Suspect]
     Active Substance: CYCLOSPORINE
     Dosage: 200 MG
     Route: 065
     Dates: start: 20190824, end: 201908
  8. ANTITHYMOCYTE IMMUNOGLOBULIN (RABBIT) [Suspect]
     Active Substance: LAPINE T-LYMPHOCYTE IMMUNE GLOBULIN
     Dosage: 120 MG
     Route: 065
     Dates: start: 20190820, end: 20190820
  9. ACETAMINOPHEN. [Concomitant]
     Active Substance: ACETAMINOPHEN
     Indication: PRODUCT USED FOR UNKNOWN INDICATION
     Dosage: UNK
     Route: 048
     Dates: start: 20190819, end: 20190823
  10. LEVOFLOXACIN HEMIHYDRATE [Concomitant]
     Active Substance: LEVOFLOXACIN
     Indication: PRODUCT USED FOR UNKNOWN INDICATION
     Dosage: UNK
     Route: 048
     Dates: start: 20190819
  11. ITRACONAZOLE. [Concomitant]
     Active Substance: ITRACONAZOLE
     Indication: PRODUCT USED FOR UNKNOWN INDICATION
     Dosage: UNK
     Route: 048
     Dates: start: 20190819
  12. CICLOSPORIN [Suspect]
     Active Substance: CYCLOSPORINE
     Dosage: 240 MG
     Route: 065
     Dates: start: 20190819, end: 201908
  13. ANTITHYMOCYTE IMMUNOGLOBULIN (RABBIT) [Suspect]
     Active Substance: LAPINE T-LYMPHOCYTE IMMUNE GLOBULIN
     Indication: APLASTIC ANAEMIA
     Dosage: 120 MG
     Route: 065
     Dates: start: 20190819, end: 20190820
  14. VONOPRAZAN FUMARATE [Concomitant]
     Active Substance: VONOPRAZAN FUMURATE
     Indication: PRODUCT USED FOR UNKNOWN INDICATION
     Dosage: UNK
     Route: 048
     Dates: start: 20190819
  15. CICLOSPORIN [Suspect]
     Active Substance: CYCLOSPORINE
     Indication: APLASTIC ANAEMIA
     Dosage: UNK
     Route: 065
  16. DIPHENHYDRAMINE HYDROCHLORIDE. [Concomitant]
     Active Substance: DIPHENHYDRAMINE HYDROCHLORIDE
     Indication: PRODUCT USED FOR UNKNOWN INDICATION
     Dosage: UNK
     Route: 048
     Dates: start: 20190819, end: 20190823
  17. PREDNISOLONE. [Concomitant]
     Active Substance: PREDNISOLONE
     Indication: PRODUCT USED FOR UNKNOWN INDICATION
     Dosage: UNK
     Route: 048
     Dates: start: 20190824
  18. ANTITHYMOCYTE IMMUNOGLOBULIN (RABBIT) [Suspect]
     Active Substance: LAPINE T-LYMPHOCYTE IMMUNE GLOBULIN
     Dosage: 120 MG
     Route: 065
     Dates: start: 20190823, end: 20190823
  19. CEFEPIME DIHYDROCHLORIDE [Concomitant]
     Active Substance: CEFEPIME HYDROCHLORIDE
     Indication: FEBRILE NEUTROPENIA
     Dosage: 4 GRAM
     Route: 042
     Dates: start: 20190824, end: 20190828
  20. ROMIPLOSTIM - KHK [Suspect]
     Active Substance: ROMIPLOSTIM
     Indication: APLASTIC ANAEMIA
     Dosage: 10 MICROGRAM/KILOGRAM
     Route: 058
     Dates: start: 20190819
  21. CICLOSPORIN [Suspect]
     Active Substance: CYCLOSPORINE
     Dosage: 180 MG
     Route: 065
     Dates: start: 20190826
  22. ANTITHYMOCYTE IMMUNOGLOBULIN (RABBIT) [Suspect]
     Active Substance: LAPINE T-LYMPHOCYTE IMMUNE GLOBULIN
     Dosage: 120 MG
     Route: 065
     Dates: start: 20190822, end: 20190822

REACTIONS (1)
  - Febrile neutropenia [Recovered/Resolved]

NARRATIVE: CASE EVENT DATE: 20190824
